FAERS Safety Report 7919607-X (Version None)
Quarter: 2011Q4

REPORT INFORMATION
  Report Type: 
  Country: None (occurrence: None)
  Receive Date: 20111116
  Receipt Date: 20111116
  Transmission Date: 20120403
  Serious: Yes (Hospitalization)
  Sender: FDA-Public Use
  Company Number: None

PATIENT
  Age: 70 Year
  Sex: Female
  Weight: 69 kg

DRUGS (8)
  1. NEURONTIN [Suspect]
     Indication: PAIN
     Dosage: 300MG TID PO CHRONIC
     Route: 048
  2. PRILOSEC [Concomitant]
  3. FLONASE [Concomitant]
  4. ZOCOR [Concomitant]
  5. BACLOFEN [Suspect]
     Indication: PAIN
     Dosage: 10 MG BID PO CHRONIC
     Route: 048
  6. METFORMIN HCL [Concomitant]
  7. METOPROLOL TARTRATE [Concomitant]
  8. DIOVAN HCT [Concomitant]

REACTIONS (3)
  - FALL [None]
  - MYOCLONUS [None]
  - BACK PAIN [None]
